FAERS Safety Report 13570996 (Version 2)
Quarter: 2017Q2

REPORT INFORMATION
  Report Type: Spontaneous
  Country: UA (occurrence: UA)
  Receive Date: 20170523
  Receipt Date: 20170602
  Transmission Date: 20170830
  Serious: Yes (Death)
  Sender: FDA-Public Use
  Company Number: UA-ASTRAZENECA-2017SE53399

PATIENT
  Age: 24876 Day
  Sex: Male

DRUGS (4)
  1. BRILINTA [Suspect]
     Active Substance: TICAGRELOR
     Indication: ACUTE MYOCARDIAL INFARCTION
     Dosage: 180.0MG UNKNOWN
     Route: 048
     Dates: start: 20170511, end: 20170515
  2. ASPIRIN. [Concomitant]
     Active Substance: ASPIRIN
  3. CLEXANE [Concomitant]
     Active Substance: ENOXAPARIN SODIUM
  4. ATORVASTATIN [Concomitant]
     Active Substance: ATORVASTATIN

REACTIONS (1)
  - Vascular stent thrombosis [Fatal]

NARRATIVE: CASE EVENT DATE: 20170515
